FAERS Safety Report 11135181 (Version 2)
Quarter: 2015Q2

REPORT INFORMATION
  Report Type: Report from Study
  Country: DE (occurrence: DE)
  Receive Date: 20150525
  Receipt Date: 20150605
  Transmission Date: 20150821
  Serious: Yes (Hospitalization)
  Sender: FDA-Public Use
  Company Number: DE-JNJFOC-20150513333

PATIENT
  Age: 73 Year
  Sex: Male
  Weight: 98 kg

DRUGS (4)
  1. DEKRISTOL [Concomitant]
     Active Substance: CHOLECALCIFEROL
     Route: 065
     Dates: start: 201303
  2. SIMPONI [Suspect]
     Active Substance: GOLIMUMAB
     Indication: RHEUMATOID ARTHRITIS
     Route: 058
     Dates: start: 20130312
  3. METHOTREXATE (METHOTREXATE SODIUM) [Concomitant]
     Active Substance: METHOTREXATE SODIUM
     Indication: RHEUMATOID ARTHRITIS
     Route: 065
     Dates: start: 201006
  4. FOLATE [Concomitant]
     Active Substance: FOLATE SODIUM
     Dosage: FOLATE 5 MG ONE DAY AFTER INTAKE OF METHOTREXAT SINCE JUNE 2010
     Route: 065
     Dates: start: 201006

REACTIONS (1)
  - Prostatic adenoma [Recovered/Resolved]

NARRATIVE: CASE EVENT DATE: 20150209
